FAERS Safety Report 19731645 (Version 1)
Quarter: 2021Q3

REPORT INFORMATION
  Report Type: Spontaneous
  Country: US (occurrence: US)
  Receive Date: 20210820
  Receipt Date: 20210820
  Transmission Date: 20211014
  Serious: No
  Sender: FDA-Public Use
  Company Number: US-SA-2021SA272127

PATIENT
  Age: 62 Year
  Sex: Female

DRUGS (6)
  1. DUPIXENT [Suspect]
     Active Substance: DUPILUMAB
     Indication: ASTHMA
     Dosage: 300 MG, QOW
     Route: 058
     Dates: start: 202105
  2. LUMIGAN [Concomitant]
     Active Substance: BIMATOPROST
  3. TYLENOL [Concomitant]
     Active Substance: ACETAMINOPHEN
  4. ADVIL [Concomitant]
     Active Substance: IBUPROFEN
  5. SYMBICORT [Concomitant]
     Active Substance: BUDESONIDE\FORMOTEROL FUMARATE DIHYDRATE
  6. VITAMINS NOS [Concomitant]
     Active Substance: VITAMINS

REACTIONS (3)
  - Drug ineffective [Unknown]
  - Arthralgia [Unknown]
  - Decreased activity [Unknown]
